FAERS Safety Report 11950129 (Version 1)
Quarter: 2016Q1

REPORT INFORMATION
  Report Type: Other
  Country: US (occurrence: US)
  Receive Date: 20160125
  Receipt Date: 20160125
  Transmission Date: 20160526
  Serious: Yes (Death)
  Sender: FDA-Public Use
  Company Number: US-LEHIGH_VALLEY-USA-POI0580201600055

PATIENT
  Age: 23 Month
  Sex: Male

DRUGS (9)
  1. BATH SALTS [Suspect]
     Active Substance: AMPHETAMINE
     Dates: end: 2014
  2. CARISOPRODOL. [Suspect]
     Active Substance: CARISOPRODOL
     Dates: end: 2014
  3. CLONAZEPAM. [Suspect]
     Active Substance: CLONAZEPAM
     Dates: end: 2014
  4. ETHANOL [Suspect]
     Active Substance: ALCOHOL
     Dates: end: 2014
  5. LAUNDRY (PREWASH) [Suspect]
     Active Substance: UNSPECIFIED INGREDIENT
     Dates: end: 2014
  6. OXYCODONE HCL CAPSULES [Suspect]
     Active Substance: OXYCODONE HYDROCHLORIDE
     Dates: end: 2014
  7. CLEANER (ANIONIC/NONIONIC) [Suspect]
     Active Substance: UNSPECIFIED INGREDIENT
     Dates: end: 2014
  8. ALPRAZOLAM. [Suspect]
     Active Substance: ALPRAZOLAM
     Dates: end: 2014
  9. CLEANER (AMMONIA) [Suspect]
     Active Substance: AMMONIA
     Dates: end: 2014

REACTIONS (2)
  - Toxicity to various agents [Fatal]
  - Accidental exposure to product [Fatal]

NARRATIVE: CASE EVENT DATE: 2014
